FAERS Safety Report 7249825-8 (Version None)
Quarter: 2011Q1

REPORT INFORMATION
  Report Type: 
  Country: None (occurrence: None)
  Receive Date: 20110128
  Receipt Date: 20100507
  Transmission Date: 20110831
  Serious: No
  Sender: FDA-Public Use
  Company Number: A0858696A

PATIENT
  Age: 36 Year
  Sex: Female

DRUGS (3)
  1. WELLBUTRIN [Suspect]
     Indication: DEPRESSION
     Dosage: 150MG PER DAY
     Route: 048
     Dates: start: 20080101
  2. KLONOPIN [Concomitant]
  3. COPAXONE [Concomitant]

REACTIONS (1)
  - DRUG INEFFECTIVE [None]
